FAERS Safety Report 8916424 (Version 1)
Quarter: 2012Q4

REPORT INFORMATION
  Report Type: 
  Country: US (occurrence: US)
  Receive Date: 20121120
  Receipt Date: 20121120
  Transmission Date: 20130627
  Serious: Yes (Hospitalization)
  Sender: FDA-Public Use
  Company Number: US-BIOGENIDEC-2012BI053009

PATIENT
  Age: 34 Year
  Sex: Male

DRUGS (2)
  1. AVONEX [Suspect]
     Indication: MULTIPLE SCLEROSIS
     Route: 030
  2. STEROIDS (NOS) [Concomitant]

REACTIONS (2)
  - Cerebrovascular accident [Unknown]
  - Memory impairment [Unknown]
